FAERS Safety Report 8818975 (Version 33)
Quarter: 2016Q3

REPORT INFORMATION
  Report Type: Report from Study
  Country: CA (occurrence: CA)
  Receive Date: 20121001
  Receipt Date: 20160930
  Transmission Date: 20161109
  Serious: Yes (Death, Hospitalization, Disabling, Other)
  Sender: FDA-Public Use
  Company Number: PHHY2011CA099696

PATIENT
  Age: 52 Year
  Sex: Female

DRUGS (4)
  1. SANDOSTATIN LAR DEPOT [Suspect]
     Active Substance: OCTREOTIDE ACETATE
     Indication: NEUROENDOCRINE TUMOUR
     Dosage: 30 MG, QMO (EVERY 4 WEEKS)
     Route: 030
     Dates: start: 20151201
  2. METOPROLOL. [Concomitant]
     Active Substance: METOPROLOL
     Indication: PRODUCT USED FOR UNKNOWN INDICATION
     Route: 065
  3. SANDOSTATIN LAR DEPOT [Suspect]
     Active Substance: OCTREOTIDE ACETATE
     Indication: CARCINOID TUMOUR
     Dosage: 20 MG, QMO (EVERY 4 WEEKS)
     Route: 030
     Dates: start: 20110111, end: 20151103
  4. SANDOSTATIN LAR DEPOT [Suspect]
     Active Substance: OCTREOTIDE ACETATE
     Dosage: 60 MG, UNK
     Route: 030

REACTIONS (30)
  - Diverticulitis [Recovering/Resolving]
  - Abdominal pain [Unknown]
  - Chest pain [Recovering/Resolving]
  - Cardiovascular disorder [Unknown]
  - Malaise [Recovering/Resolving]
  - Injection site pain [Unknown]
  - Blood pressure increased [Unknown]
  - Feeling abnormal [Unknown]
  - Renal disorder [Unknown]
  - Neck mass [Recovering/Resolving]
  - Death [Fatal]
  - Intestinal obstruction [Unknown]
  - Flushing [Not Recovered/Not Resolved]
  - Frustration tolerance decreased [Unknown]
  - Flatulence [Unknown]
  - Abdominal tenderness [Unknown]
  - Fibula fracture [Unknown]
  - Fall [Unknown]
  - Lower limb fracture [Unknown]
  - Liver disorder [Unknown]
  - Paraesthesia [Unknown]
  - Pain [Recovering/Resolving]
  - Blood pressure diastolic decreased [Unknown]
  - Intra-abdominal fluid collection [Unknown]
  - Road traffic accident [Unknown]
  - Limb discomfort [Unknown]
  - Blood pressure systolic increased [Unknown]
  - Diarrhoea [Not Recovered/Not Resolved]
  - Abdominal pain lower [Unknown]
  - Fatigue [Unknown]

NARRATIVE: CASE EVENT DATE: 20120529
